FAERS Safety Report 6751224 (Version 4)
Quarter: 2013Q4

REPORT INFORMATION
  Report Type: Report from Study
  Country: AU (occurrence: AU)
  Receive Date: 20080909
  Receipt Date: 20131202
  Transmission Date: 20140711
  Serious: Yes (Death, Other)
  Sender: FDA-Public Use
  Company Number: PHNR2007AU01273

PATIENT
  Age: 55 Year
  Sex: Male

DRUGS (15)
  1. CLOZARIL [Suspect]
     Indication: SCHIZOPHRENIA
     Dosage: UNK
     Dates: start: 1996
  2. CLOZARIL [Suspect]
     Dosage: UNK
     Route: 048
     Dates: start: 19960215
  3. CLOZARIL [Suspect]
     Dosage: 600 MG, DAILY
  4. CLOZARIL [Suspect]
     Dosage: 700 MG, NOCTE
     Dates: start: 20040219
  5. CLOZARIL [Suspect]
     Dosage: 700 MG, NOCTE
     Dates: start: 20040326
  6. CLOZARIL [Suspect]
     Dosage: 700 MG, NOCTE
  7. CLOZARIL [Suspect]
     Dosage: 700 MG, NOCTE
     Dates: start: 20070213
  8. CLOZARIL [Suspect]
     Dosage: 700 MG, NOCTE (AT 5.10 PM)
     Dates: start: 20070215
  9. SERTRALINE [Concomitant]
     Dosage: 1 DF, UNK
  10. SERTRALINE [Concomitant]
     Dosage: 1 DF, MANE
     Dates: start: 20040219
  11. SERTRALINE [Concomitant]
     Dosage: 1 DF, MANE
     Dates: start: 20070213
  12. OMEPRAZOLE [Concomitant]
     Indication: GASTROOESOPHAGEAL REFLUX DISEASE
     Dosage: UNK
  13. OMEPRAZOLE [Concomitant]
     Dosage: 20 MG, DAILY
  14. OMEPRAZOLE [Concomitant]
     Dosage: 20 MG, DAILY
     Dates: start: 20070213
  15. ZOLOFT [Concomitant]
     Dosage: 100 MG, MANE
     Dates: start: 20070213

REACTIONS (17)
  - Death [Fatal]
  - Type 2 diabetes mellitus [Unknown]
  - Dilatation atrial [Unknown]
  - Psychotic disorder [Unknown]
  - Hallucination, auditory [Unknown]
  - Delusion [Unknown]
  - Paranoia [Unknown]
  - Emotional disorder [Unknown]
  - Psychopathic personality [Unknown]
  - Antipsychotic drug level increased [Unknown]
  - Arrhythmia [Unknown]
  - Cognitive disorder [Unknown]
  - Disturbance in attention [Unknown]
  - Memory impairment [Unknown]
  - Thinking abnormal [Unknown]
  - Malaise [Unknown]
  - Hyperhidrosis [Unknown]
